FAERS Safety Report 9923140 (Version 1)
Quarter: 2014Q1

REPORT INFORMATION
  Report Type: Spontaneous
  Country: US (occurrence: US)
  Receive Date: 20140225
  Receipt Date: 20140225
  Transmission Date: 20141002
  Serious: No
  Sender: FDA-Public Use
  Company Number: US-AMGEN-USASP2013070014

PATIENT
  Age: 86 Year
  Sex: Male

DRUGS (3)
  1. ENBREL [Suspect]
     Indication: RHEUMATOID ARTHRITIS
     Dosage: 50 MG, QWK
     Route: 065
     Dates: start: 20130730
  2. PLAQUENIL                          /00072602/ [Concomitant]
     Dosage: 200 UNK, QD
  3. PREDNISONE                         /00044702/ [Concomitant]
     Dosage: 7 MG, QD

REACTIONS (1)
  - Joint swelling [Not Recovered/Not Resolved]
